FAERS Safety Report 6967547-5 (Version None)
Quarter: 2010Q3

REPORT INFORMATION
  Report Type: 
  Country: None (occurrence: None)
  Receive Date: 20100907
  Receipt Date: 20100827
  Transmission Date: 20110219
  Serious: Yes (Other)
  Sender: FDA-Public Use
  Company Number: PH-BAXTER-2010BH022387

PATIENT
  Age: 4 Year
  Sex: Male

DRUGS (2)
  1. HEMOFIL M [Suspect]
     Indication: HAEMORRHAGE
     Route: 065
     Dates: start: 20100812
  2. HEMOFIL M [Suspect]
     Indication: SPINAL CORD HAEMORRHAGE
     Route: 065
     Dates: start: 20100812

REACTIONS (2)
  - DYSPNOEA [None]
  - RASH [None]
